FAERS Safety Report 9248231 (Version 1)
Quarter: 2013Q2

REPORT INFORMATION
  Report Type: Spontaneous
  Country: US (occurrence: US)
  Receive Date: 20130423
  Receipt Date: 20130423
  Transmission Date: 20140414
  Serious: Yes (Other)
  Sender: FDA-Public Use
  Company Number: US-SANOFI-AVENTIS-2013SA040565

PATIENT
  Age: 51 Year
  Sex: Female

DRUGS (6)
  1. ALLEGRA [Suspect]
     Indication: HYPERSENSITIVITY
     Route: 048
     Dates: start: 20130321, end: 20130416
  2. CLARITIN [Concomitant]
     Indication: HYPERSENSITIVITY
  3. ATARAX [Concomitant]
     Indication: HYPERSENSITIVITY
  4. PEPCID [Concomitant]
     Indication: HYPERSENSITIVITY
  5. PREDNISONE [Concomitant]
     Indication: HYPERSENSITIVITY
  6. TYLENOL [Concomitant]

REACTIONS (6)
  - Hypersensitivity [Not Recovered/Not Resolved]
  - Dysphagia [Not Recovered/Not Resolved]
  - Pharyngeal oedema [Not Recovered/Not Resolved]
  - Chest discomfort [Not Recovered/Not Resolved]
  - Tachycardia [Not Recovered/Not Resolved]
  - Headache [Not Recovered/Not Resolved]
